FAERS Safety Report 9156209 (Version 1)
Quarter: 2013Q1

REPORT INFORMATION
  Report Type: Not Available
  Country: FR (occurrence: FR)
  Receive Date: 20130215
  Receipt Date: 20130215
  Transmission Date: 20140127
  Serious: Yes (Hospitalization)
  Sender: FDA-Public Use
  Company Number: FR-RB-049896-13

PATIENT
  Age: 4 Year
  Sex: Male
  Weight: 18 kg

DRUGS (1)
  1. SUBUTEX [Suspect]
     Indication: ACCIDENTAL EXPOSURE TO PRODUCT BY CHILD
     Dosage: UNIQUE INTAKE
     Route: 048
     Dates: start: 20130111, end: 20130111

REACTIONS (4)
  - Somnolence [Recovered/Resolved]
  - Dysarthria [Recovered/Resolved]
  - Miosis [Recovered/Resolved]
  - Accidental exposure to product [Recovered/Resolved]
